FAERS Safety Report 9791828 (Version 1)
Quarter: 2014Q1

REPORT INFORMATION
  Report Type: Spontaneous
  Country: IT (occurrence: IT)
  Receive Date: 20140102
  Receipt Date: 20140102
  Transmission Date: 20141002
  Serious: Yes (Death)
  Sender: FDA-Public Use
  Company Number: IT-TEVA-453549ISR

PATIENT
  Age: 26 Year
  Sex: Male

DRUGS (4)
  1. CITALOPRAM [Suspect]
     Indication: OVERDOSE
     Route: 065
  2. DIAMORPHINE [Suspect]
     Indication: OVERDOSE
     Route: 065
  3. CAFFEINE [Suspect]
     Indication: OVERDOSE
     Route: 065
  4. PARACETAMOL [Concomitant]
     Route: 065

REACTIONS (5)
  - Overdose [Fatal]
  - Toxicity to various agents [Fatal]
  - Overdose [Fatal]
  - Cardiac ventricular disorder [Fatal]
  - Necrosis [Fatal]
